FAERS Safety Report 8041881-2 (Version None)
Quarter: 2012Q1

REPORT INFORMATION
  Report Type: 
  Country: None (occurrence: None)
  Receive Date: 20120112
  Receipt Date: 20120112
  Transmission Date: 20120608
  Serious: Yes (Other)
  Sender: FDA-Public Use
  Company Number: None

PATIENT
  Age: 58 Year
  Sex: Male
  Weight: 74.842 kg

DRUGS (1)
  1. ULORIC [Suspect]
     Indication: GOUT
     Dosage: 40 MG
     Route: 048
     Dates: start: 20111015, end: 20111115

REACTIONS (7)
  - DIZZINESS [None]
  - IMPAIRED WORK ABILITY [None]
  - CONDITION AGGRAVATED [None]
  - RASH [None]
  - PRURITUS [None]
  - NAUSEA [None]
  - GOUT [None]
